FAERS Safety Report 4966370-0 (Version None)
Quarter: 2006Q2

REPORT INFORMATION
  Report Type: 
  Country: None (occurrence: None)
  Receive Date: 20060407
  Receipt Date: 20060222
  Transmission Date: 20061013
  Serious: Yes (Death)
  Sender: FDA-Public Use
  Company Number: JP-ROCHE-438133

PATIENT
  Age: 3 Year
  Sex: Male
  Weight: 15 kg

DRUGS (7)
  1. TAMIFLU [Suspect]
     Route: 048
     Dates: start: 20060221, end: 20060221
  2. BERACHIN [Concomitant]
     Route: 048
     Dates: start: 20060221, end: 20060221
  3. PULSMARIN A [Concomitant]
     Route: 048
     Dates: start: 20060221, end: 20060221
  4. UNSPECIFIED DRUG [Concomitant]
     Dosage: DRUG REPORTED AS NICHICODE
     Route: 048
     Dates: start: 20060221, end: 20060221
  5. ANHIBA [Concomitant]
     Route: 054
     Dates: start: 20060221, end: 20060221
  6. VENETLIN [Concomitant]
     Route: 055
     Dates: start: 20060221, end: 20060221
  7. BOSMIN [Concomitant]
     Route: 055
     Dates: start: 20060221, end: 20060221

REACTIONS (3)
  - CARDIO-RESPIRATORY ARREST [None]
  - CARDIOMYOPATHY [None]
  - ENCEPHALITIS INFLUENZAL [None]
